FAERS Safety Report 6480809-3 (Version None)
Quarter: 2009Q4

REPORT INFORMATION
  Report Type: 
  Country: None (occurrence: None)
  Receive Date: 20091203
  Receipt Date: 20091123
  Transmission Date: 20100525
  Serious: Yes (Death, Hospitalization)
  Sender: FDA-Public Use
  Company Number: 2009029228

PATIENT
  Sex: Male
  Weight: 115 kg

DRUGS (3)
  1. TRISENOX [Suspect]
     Indication: ACUTE MYELOID LEUKAEMIA
     Dosage: (DASY 1-5 QW), INTRAVENOUS DRIP
     Route: 041
     Dates: start: 20091102, end: 20091109
  2. DECITABINE (DECITABINE) (20 MICROGRAM(S) /SW.METER) [Suspect]
     Indication: ACUTE MYELOID LEUKAEMIA
     Dosage: (DAYS 1-5 QW), INTRAVENOUS
     Route: 042
     Dates: start: 20091102, end: 20091106
  3. ASCORBIC ACID [Suspect]
     Indication: ACUTE MYELOID LEUKAEMIA
     Dosage: (1000 MG, DAYS 1-5 QW), INTRAVENOUS
     Route: 042
     Dates: start: 20091102, end: 20091109

REACTIONS (10)
  - ABDOMINAL PAIN [None]
  - ACUTE RESPIRATORY FAILURE [None]
  - ATRIAL FIBRILLATION [None]
  - BRONCHOPULMONARY ASPERGILLOSIS [None]
  - FATIGUE [None]
  - FUNGAL INFECTION [None]
  - LEUKAEMIA RECURRENT [None]
  - RENAL FAILURE ACUTE [None]
  - SEPTIC SHOCK [None]
  - WITHDRAWAL OF LIFE SUPPORT [None]
